FAERS Safety Report 6902159-0 (Version None)
Quarter: 2010Q3

REPORT INFORMATION
  Report Type: 
  Country: None (occurrence: None)
  Receive Date: 20100802
  Receipt Date: 20100802
  Transmission Date: 20110219
  Serious: Yes (Death, Hospitalization)
  Sender: FDA-Public Use
  Company Number: None

PATIENT
  Age: 84 Year
  Sex: Male

DRUGS (2)
  1. METHOTREXATE [Suspect]
     Dosage: 15 MG ONCE OTHER
     Route: 050
     Dates: start: 20091217, end: 20100729
  2. ADALIMUMAB [Suspect]
     Dosage: ONCE SQ
     Route: 058
     Dates: start: 20091217, end: 20100729

REACTIONS (5)
  - ASTHENIA [None]
  - DIARRHOEA [None]
  - FEBRILE NEUTROPENIA [None]
  - RENAL FAILURE ACUTE [None]
  - SEPSIS [None]
